FAERS Safety Report 8833982 (Version 1)
Quarter: 2012Q4

REPORT INFORMATION
  Report Type: 
  Country: CA (occurrence: CA)
  Receive Date: 20121010
  Receipt Date: 20121010
  Transmission Date: 20130627
  Serious: Yes (Hospitalization, Other)
  Sender: FDA-Public Use
  Company Number: CA-WATSON-2012-17395

PATIENT
  Age: 7 Day

DRUGS (1)
  1. CODEINE-ACETAMINOPHEN (UNKNOWN) [Suspect]
     Indication: EXPOSURE DURING BREAST FEEDING
     Dosage: UNK
     Route: 063

REACTIONS (3)
  - Miosis [Recovered/Resolved]
  - Lethargy [Recovered/Resolved]
  - Exposure during breast feeding [Recovered/Resolved]
